FAERS Safety Report 8227352-9 (Version None)
Quarter: 2012Q1

REPORT INFORMATION
  Report Type: 
  Country: None (occurrence: None)
  Receive Date: 20120322
  Receipt Date: 20120314
  Transmission Date: 20120608
  Serious: Yes (Hospitalization)
  Sender: FDA-Public Use
  Company Number: US-BAYER-2011-116663

PATIENT
  Age: 21 Year
  Sex: Female
  Weight: 95.238 kg

DRUGS (3)
  1. ACETAMINOPHEN AND HYDROCODONE BITARTRATE [Concomitant]
     Dosage: UNK
     Dates: start: 20081018
  2. YAZ [Suspect]
     Dosage: UNK
     Dates: start: 20050101, end: 20090101
  3. YASMIN [Suspect]
     Dosage: UNK
     Dates: start: 20050101, end: 20090101

REACTIONS (3)
  - BILIARY COLIC [None]
  - PAIN [None]
  - GALLBLADDER DISORDER [None]
